FAERS Safety Report 21031221 (Version 1)
Quarter: 2022Q3

REPORT INFORMATION
  Report Type: Spontaneous
  Country: US (occurrence: None)
  Receive Date: 20220701
  Receipt Date: 20220701
  Transmission Date: 20221027
  Serious: No
  Sender: FDA-Public Use
  Company Number: US-ROCHE-3053181

PATIENT
  Age: 68 Year
  Sex: Female
  Weight: 90.800 kg

DRUGS (5)
  1. ACTEMRA [Suspect]
     Active Substance: TOCILIZUMAB
     Indication: Rheumatoid arthritis
     Route: 058
  2. ACTEMRA [Suspect]
     Active Substance: TOCILIZUMAB
  3. VALSARTAN [Concomitant]
     Active Substance: VALSARTAN
     Indication: Hypertension
     Dosage: CUTS A 150 MG PILL IN HALF
     Route: 048
  4. VALSARTAN [Concomitant]
     Active Substance: VALSARTAN
     Dosage: ONGOING NO
     Route: 048
     Dates: start: 20210715
  5. PREDNISONE [Concomitant]
     Active Substance: PREDNISONE

REACTIONS (4)
  - Contusion [Recovered/Resolved]
  - Condition aggravated [Not Recovered/Not Resolved]
  - Drug delivery system malfunction [Unknown]
  - Product administration error [Unknown]

NARRATIVE: CASE EVENT DATE: 20220301
